FAERS Safety Report 9663844 (Version 1)
Quarter: 2013Q4

REPORT INFORMATION
  Report Type: Report from Study
  Country: US (occurrence: US)
  Receive Date: 20131101
  Receipt Date: 20131101
  Transmission Date: 20140711
  Serious: Yes (Other)
  Sender: FDA-Public Use
  Company Number: US-ROXANE LABORATORIES, INC.-2013-BI-17365GD

PATIENT
  Age: 17 Year
  Sex: Female

DRUGS (3)
  1. PREDNISONE [Suspect]
     Indication: UVEITIS
     Dosage: 60 MG
     Dates: start: 2008
  2. PREDNISONE [Suspect]
     Dosage: 30 MG
  3. CYCLOSPORINE [Concomitant]
     Indication: UVEITIS
     Dosage: 200 MG
     Dates: start: 2008

REACTIONS (2)
  - Osteonecrosis [Unknown]
  - Arthralgia [Unknown]
